FAERS Safety Report 6507213-3 (Version None)
Quarter: 2009Q4

REPORT INFORMATION
  Report Type: 
  Country: None (occurrence: None)
  Receive Date: 20091201
  Receipt Date: 20081028
  Transmission Date: 20100525
  Serious: Yes (Hospitalization, Other)
  Sender: FDA-Public Use
  Company Number: 2008-186049-NL

PATIENT
  Age: 30 Year
  Sex: Female
  Weight: 79.4 kg

DRUGS (1)
  1. NUVARING [Suspect]
     Indication: CONTRACEPTION
     Dates: start: 20060701, end: 20080701

REACTIONS (1)
  - DEEP VEIN THROMBOSIS [None]
